FAERS Safety Report 9135209 (Version 1)
Quarter: 2013Q1

REPORT INFORMATION
  Report Type: Spontaneous
  Country: US (occurrence: US)
  Receive Date: 20130304
  Receipt Date: 20130304
  Transmission Date: 20140127
  Serious: No
  Sender: FDA-Public Use
  Company Number: US-ALLERGAN-1215404US

PATIENT
  Age: 44 Year
  Sex: Female

DRUGS (2)
  1. TAZORAC [Suspect]
     Indication: ACNE
     Dosage: UNK UNK, SINGLE
     Route: 061
     Dates: start: 20121101, end: 20121101
  2. ESTRADIOL [Concomitant]
     Indication: HORMONE REPLACEMENT THERAPY
     Dosage: UNK
     Dates: start: 1988

REACTIONS (9)
  - Eyelid oedema [Recovered/Resolved]
  - Eye swelling [Recovered/Resolved]
  - Eye pruritus [Recovered/Resolved]
  - Eye pain [Recovered/Resolved]
  - Erythema [Recovering/Resolving]
  - Rash [Recovered/Resolved]
  - Burning sensation [Recovering/Resolving]
  - Swelling face [Recovered/Resolved]
  - Pruritus [Recovered/Resolved]
